FAERS Safety Report 14730114 (Version 54)
Quarter: 2021Q2

REPORT INFORMATION
  Report Type: Spontaneous
  Country: CA (occurrence: CA)
  Receive Date: 20180406
  Receipt Date: 20210607
  Transmission Date: 20210716
  Serious: Yes (Hospitalization, Other)
  Sender: FDA-Public Use
  Company Number: CA-CELLTRION INC.-2018CA018490

PATIENT

DRUGS (29)
  1. INFLECTRA [Suspect]
     Active Substance: INFLIXIMAB-DYYB
     Dosage: 5 MG/KG, (ROUNDED TO NEAREST VIAL) AT 0, 2 AND 6 WEEKS THEN EVERY 8 WEEKS
     Route: 042
     Dates: start: 20200804
  2. METHOTREXATE. [Concomitant]
     Active Substance: METHOTREXATE
     Dosage: UNK
     Route: 065
  3. PREDNISONE. [Concomitant]
     Active Substance: PREDNISONE
     Dosage: 60 MG, 1X/DAY
     Route: 065
     Dates: start: 201802
  4. INFLECTRA [Suspect]
     Active Substance: INFLIXIMAB-DYYB
     Indication: CROHN^S DISEASE
     Dosage: 5 MG/KG ON WEEK 2, 6 THEN EVERY 8 WEEKS
     Route: 042
     Dates: start: 20180213, end: 20180913
  5. INFLECTRA [Suspect]
     Active Substance: INFLIXIMAB-DYYB
     Dosage: 5 MG/KG, (ROUNDED TO NEAREST VIAL) EVERY 6 WEEKS
     Route: 042
     Dates: start: 20201214
  6. INFLECTRA [Suspect]
     Active Substance: INFLIXIMAB-DYYB
     Dosage: 5 MG/KG, (ROUNDED TO NEAREST VIAL) EVERY 6 WEEKS
     Route: 042
     Dates: start: 20210120, end: 20210120
  7. 6?MERCAPTOPURINE MONOHYDRATE [Concomitant]
     Active Substance: MERCAPTOPURINE
     Dosage: UNK
     Route: 065
  8. PROLIA [Concomitant]
     Active Substance: DENOSUMAB
     Indication: OSTEOPOROSIS
     Dosage: UNK, ONCE EVERY 6 MONTHS
     Route: 065
  9. INFLECTRA [Suspect]
     Active Substance: INFLIXIMAB-DYYB
     Dosage: 5 MG/KG ON WEEK 2, 6 THEN EVERY 8 WEEKS
     Route: 042
     Dates: start: 20180913
  10. INFLECTRA [Suspect]
     Active Substance: INFLIXIMAB-DYYB
     Dosage: 5 MG/KG ON WEEK 2, 6 THEN EVERY 8 WEEKS
     Route: 042
     Dates: start: 20180523
  11. INFLECTRA [Suspect]
     Active Substance: INFLIXIMAB-DYYB
     Dosage: 5 MG/KG ON WEEK 2, 6 THEN EVERY 8 WEEKS
     Route: 042
     Dates: start: 20180718
  12. PROLIA [Concomitant]
     Active Substance: DENOSUMAB
     Dosage: 1 DF, ONCE EVERY 6 MONTHS (DOSAGE INFO UNKNOWN, DRUG ONGOING)
     Route: 065
  13. INFLECTRA [Suspect]
     Active Substance: INFLIXIMAB-DYYB
     Dosage: 5 MG/KG, (ROUNDED TO NEAREST VIAL) EVERY 6 WEEKS
     Route: 042
     Dates: start: 20190913
  14. INFLECTRA [Suspect]
     Active Substance: INFLIXIMAB-DYYB
     Dosage: 5 MG/KG, (ROUNDED TO NEAREST VIAL) AT 0, 2 AND 6 WEEKS THEN EVERY 8 WEEKS
     Route: 042
     Dates: start: 20200622, end: 20201102
  15. PROLIA [Concomitant]
     Active Substance: DENOSUMAB
     Dosage: 1 DF, MONTHLY
     Route: 065
  16. INFLECTRA [Suspect]
     Active Substance: INFLIXIMAB-DYYB
     Dosage: 5 MG/KG ON WEEK 2, 6 THEN EVERY 8 WEEKS
     Route: 042
     Dates: start: 20180227
  17. INFLECTRA [Suspect]
     Active Substance: INFLIXIMAB-DYYB
     Dosage: 5 MG/KG, (ROUNDED TO NEAREST VIAL) AT 0, 2 AND 6 WEEKS THEN EVERY 8 WEEKS
     Route: 042
     Dates: start: 20201102
  18. METHOTREXATE. [Concomitant]
     Active Substance: METHOTREXATE
     Dosage: 1 DF, UNK (DOSAGE INFO UNKNWON, DRUG ONGOING)
     Route: 065
  19. PREDNISONE. [Concomitant]
     Active Substance: PREDNISONE
     Dosage: UNK
     Route: 048
  20. PREDNISONE. [Concomitant]
     Active Substance: PREDNISONE
     Dosage: 6 MG, 1X/DAY 804 (DAY)
     Route: 065
     Dates: start: 201802
  21. INFLECTRA [Suspect]
     Active Substance: INFLIXIMAB-DYYB
     Dosage: 5 MG/KG ON WEEK 2, 6 THEN EVERY 8 WEEKS
     Route: 042
     Dates: start: 20180430
  22. INFLECTRA [Suspect]
     Active Substance: INFLIXIMAB-DYYB
     Dosage: 5 MG/KG (ROUNDED TO NEAREST VIAL), EVERY 6 WEEKS
     Route: 042
     Dates: start: 20181025, end: 20190913
  23. INFLECTRA [Suspect]
     Active Substance: INFLIXIMAB-DYYB
     Dosage: 5 MG/KG (INFUSED WITH 200 MG), EVERY 6 WEEKS
     Route: 042
     Dates: start: 20181206
  24. INFLECTRA [Suspect]
     Active Substance: INFLIXIMAB-DYYB
     Dosage: 5 MG/KG, EVERY 6 WEEKS
     Route: 042
     Dates: start: 20190314
  25. INFLECTRA [Suspect]
     Active Substance: INFLIXIMAB-DYYB
     Dosage: UNK
     Route: 042
     Dates: start: 20190517
  26. INFLECTRA [Suspect]
     Active Substance: INFLIXIMAB-DYYB
     Dosage: 5 MG/KG, (ROUNDED TO NEAREST VIAL) AT 0, 2 AND 6 WEEKS THEN EVERY 8 WEEKS
     Route: 042
     Dates: start: 20200622, end: 20201102
  27. INFLECTRA [Suspect]
     Active Substance: INFLIXIMAB-DYYB
     Dosage: 5 MG/KG, (ROUNDED TO NEAREST VIAL) AT 0, 2 AND 6 WEEKS THEN EVERY 8 WEEKS
     Route: 042
     Dates: start: 20200901
  28. 6?MERCAPTOPURINE MONOHYDRATE [Concomitant]
     Active Substance: MERCAPTOPURINE
     Dosage: 1 DF (DOSAGE INFO UNKNOWN, DRUG ONGOING)
     Route: 065
  29. PREDNISONE. [Concomitant]
     Active Substance: PREDNISONE
     Dosage: 10 MG, (AND INCREASED SEVERAL TIMES OVER A 20 YEAR SPAN)
     Route: 065

REACTIONS (41)
  - Urinary tract infection [Unknown]
  - Dyspnoea [Unknown]
  - Condition aggravated [Unknown]
  - Foot deformity [Unknown]
  - Nausea [Recovered/Resolved]
  - Intentional product use issue [Unknown]
  - Nephrolithiasis [Unknown]
  - Diarrhoea [Recovered/Resolved]
  - Ovarian atrophy [Unknown]
  - Wound haemorrhage [Unknown]
  - Female genital tract fistula [Not Recovered/Not Resolved]
  - Left ventricular hypertrophy [Unknown]
  - Dysstasia [Unknown]
  - Vomiting [Unknown]
  - Mobility decreased [Unknown]
  - Off label use [Unknown]
  - Malaise [Unknown]
  - Pulmonary embolism [Unknown]
  - Enterovesical fistula [Recovering/Resolving]
  - Blood pressure increased [Unknown]
  - Pain [Unknown]
  - Condition aggravated [Recovered/Resolved]
  - Fall [Unknown]
  - Bladder disorder [Unknown]
  - Dizziness [Not Recovered/Not Resolved]
  - Wound [Unknown]
  - Atypical pneumonia [Unknown]
  - Delirium [Unknown]
  - Abscess limb [Not Recovered/Not Resolved]
  - Contusion [Unknown]
  - Off label use [Unknown]
  - Off label use [Unknown]
  - Asthenia [Not Recovered/Not Resolved]
  - Alopecia [Unknown]
  - Fatigue [Unknown]
  - Balance disorder [Unknown]
  - Pain in extremity [Not Recovered/Not Resolved]
  - Abscess [Unknown]
  - Weight fluctuation [Not Recovered/Not Resolved]
  - Ovarian cyst [Unknown]
  - Diverticulum intestinal [Unknown]

NARRATIVE: CASE EVENT DATE: 2018
